FAERS Safety Report 25392505 (Version 2)
Quarter: 2025Q2

REPORT INFORMATION
  Report Type: Spontaneous
  Country: US (occurrence: US)
  Receive Date: 20250603
  Receipt Date: 20250619
  Transmission Date: 20250716
  Serious: No
  Sender: SANOFI AVENTIS
  Company Number: US-SA-2025SA158007

PATIENT
  Age: 33 Year
  Sex: Male

DRUGS (1)
  1. DUPIXENT [Suspect]
     Active Substance: DUPILUMAB
     Indication: Eosinophilic oesophagitis
     Dosage: 300 MG, QW
     Route: 058
     Dates: start: 20250427

REACTIONS (10)
  - Gastrointestinal disorder [Unknown]
  - Pain [Unknown]
  - Acne [Unknown]
  - Diarrhoea [Unknown]
  - Insomnia [Unknown]
  - Dizziness [Unknown]
  - Eosinophilic oesophagitis [Unknown]
  - Injection site pain [Unknown]
  - Oral herpes [Unknown]
  - Arthralgia [Unknown]

NARRATIVE: CASE EVENT DATE: 20250101
